FAERS Safety Report 15351159 (Version 1)
Quarter: 2018Q3

REPORT INFORMATION
  Report Type: Spontaneous
  Country: US (occurrence: US)
  Receive Date: 20180905
  Receipt Date: 20180905
  Transmission Date: 20181010
  Serious: Yes (Other)
  Sender: FDA-Public Use
  Company Number: US-BAUSCH-BL-2018-024407

PATIENT
  Sex: Female

DRUGS (2)
  1. ADVANCED EYE RELIEF DRY EYE REJUVENATION [Suspect]
     Active Substance: GLYCERIN\PROPYLENE GLYCOL
     Indication: PRODUCT USED FOR UNKNOWN INDICATION
     Dosage: USED FOR MANY YEARS
     Route: 065
  2. ADVANCED EYE RELIEF DRY EYE REJUVENATION [Suspect]
     Active Substance: GLYCERIN\PROPYLENE GLYCOL
     Dosage: THREE OR FOUR TIMES A DAY
     Route: 065
     Dates: start: 2018

REACTIONS (2)
  - Laser therapy [Unknown]
  - Dry eye [Unknown]

NARRATIVE: CASE EVENT DATE: 2018
